FAERS Safety Report 18283525 (Version 2)
Quarter: 2020Q3

REPORT INFORMATION
  Report Type: Spontaneous
  Country: IT (occurrence: IT)
  Receive Date: 20200918
  Receipt Date: 20200925
  Transmission Date: 20201103
  Serious: Yes (Life-Threatening, Hospitalization, Other)
  Sender: FDA-Public Use
  Company Number: IT-PFIZER INC-2020360391

PATIENT
  Age: 68 Year
  Sex: Male

DRUGS (1)
  1. METHOTREXATE SODIUM. [Suspect]
     Active Substance: METHOTREXATE SODIUM
     Indication: RHEUMATOID ARTHRITIS
     Dosage: 7.5 MG, DAILY

REACTIONS (9)
  - Toxicity to various agents [Recovered/Resolved]
  - Malaise [Recovered/Resolved]
  - Thrombocytopenia [Recovered/Resolved]
  - Intestinal perforation [Recovered/Resolved]
  - Haematochezia [Recovered/Resolved]
  - Stomatitis [Recovered/Resolved]
  - Overdose [Recovered/Resolved]
  - Oropharyngeal pain [Recovered/Resolved]
  - Nasal inflammation [Recovered/Resolved]
